FAERS Safety Report 14390570 (Version 1)
Quarter: 2018Q1

REPORT INFORMATION
  Report Type: Other
  Country: PL (occurrence: PL)
  Receive Date: 20180116
  Receipt Date: 20180116
  Transmission Date: 20180509
  Serious: Yes (Life-Threatening, Hospitalization, Other)
  Sender: FDA-Public Use
  Company Number: PL-APOTEX-2018AP005163

PATIENT
  Age: 35 Year
  Sex: Female

DRUGS (3)
  1. SERTRALINE [Suspect]
     Active Substance: SERTRALINE HYDROCHLORIDE
     Dosage: DOSE REDUCED
     Route: 065
  2. CARBAMAZEPINE. [Suspect]
     Active Substance: CARBAMAZEPINE
     Indication: DEPRESSION
     Dosage: 100 MG, QD
     Route: 065
  3. SERTRALINE [Suspect]
     Active Substance: SERTRALINE HYDROCHLORIDE
     Indication: DEPRESSION
     Dosage: 100 MG, QD
     Route: 065

REACTIONS (19)
  - Body temperature increased [Recovered/Resolved]
  - Mucous membrane disorder [Recovered/Resolved]
  - Lymphopenia [Recovered/Resolved]
  - Dermatitis exfoliative generalised [Recovered/Resolved]
  - Haemoglobin decreased [Recovered/Resolved]
  - Asthenia [Recovered/Resolved]
  - Urticaria [Recovered/Resolved]
  - Pruritus [Recovered/Resolved]
  - C-reactive protein increased [Recovered/Resolved]
  - Drug reaction with eosinophilia and systemic symptoms [Recovered/Resolved]
  - Erythema [Recovered/Resolved]
  - Haematocrit decreased [Recovered/Resolved]
  - Rash papular [Recovered/Resolved]
  - Oedema [Recovered/Resolved]
  - Condition aggravated [Recovered/Resolved]
  - Transaminases increased [Recovered/Resolved]
  - Skin burning sensation [Recovered/Resolved]
  - Rash maculo-papular [Recovered/Resolved]
  - Red blood cell count decreased [Recovered/Resolved]
